FAERS Safety Report 24292713 (Version 1)
Quarter: 2024Q3

REPORT INFORMATION
  Report Type: Spontaneous
  Country: US (occurrence: None)
  Receive Date: 20240906
  Receipt Date: 20240906
  Transmission Date: 20241017
  Serious: No
  Sender: DOMPE FARMACEUTICI
  Company Number: US-FARMAPROD-202308-202310-2959

PATIENT
  Sex: Female

DRUGS (9)
  1. OXERVATE [Suspect]
     Active Substance: CENEGERMIN-BKBJ
     Indication: Neurotrophic keratopathy
     Route: 047
     Dates: start: 20230912
  2. GABAPENTIN [Concomitant]
     Active Substance: GABAPENTIN
  3. LAMOTRIGINE [Concomitant]
     Active Substance: LAMOTRIGINE
  4. NORTRIPTYLINE HYDROCHLORIDE [Concomitant]
     Active Substance: NORTRIPTYLINE HYDROCHLORIDE
  5. NORTRIPTYLINE HYDROCHLORIDE [Concomitant]
     Active Substance: NORTRIPTYLINE HYDROCHLORIDE
  6. ADVIL [Concomitant]
     Active Substance: IBUPROFEN\IBUPROFEN SODIUM
  7. ZOLOFT [Concomitant]
     Active Substance: SERTRALINE HYDROCHLORIDE
  8. SYSTANE COMPLETE PF [Concomitant]
     Active Substance: PROPYLENE GLYCOL
  9. EMGALITY [Concomitant]
     Active Substance: GALCANEZUMAB-GNLM
     Dosage: PEN INJECTOR.

REACTIONS (1)
  - Ocular hyperaemia [Unknown]
